FAERS Safety Report 24967504 (Version 1)
Quarter: 2025Q1

REPORT INFORMATION
  Report Type: Spontaneous
  Country: US (occurrence: US)
  Receive Date: 20250214
  Receipt Date: 20250214
  Transmission Date: 20250409
  Serious: No
  Sender: TAKEDA
  Company Number: US-TAKEDA-2025TUS014494

PATIENT
  Sex: Female
  Weight: 18 kg

DRUGS (5)
  1. PENTASA [Suspect]
     Active Substance: MESALAMINE
     Indication: Colitis ulcerative
  2. PENTASA [Suspect]
     Active Substance: MESALAMINE
     Indication: Rectal haemorrhage
  3. MESALAMINE [Suspect]
     Active Substance: MESALAMINE
     Indication: Colitis ulcerative
  4. MESALAMINE [Suspect]
     Active Substance: MESALAMINE
     Indication: Rectal haemorrhage
  5. IRON [Concomitant]
     Active Substance: IRON

REACTIONS (4)
  - No adverse event [Unknown]
  - Product substitution issue [Unknown]
  - Product availability issue [Unknown]
  - Product use complaint [Unknown]
